FAERS Safety Report 17839668 (Version 3)
Quarter: 2023Q2

REPORT INFORMATION
  Report Type: Report from Study
  Country: US (occurrence: US)
  Receive Date: 20200529
  Receipt Date: 20230505
  Transmission Date: 20230721
  Serious: No
  Sender: FDA-Public Use
  Company Number: US-ACADIA PHARMACEUTICALS INC.-ACA-2020-PIM-001508

PATIENT
  Sex: Male

DRUGS (4)
  1. NUPLAZID [Suspect]
     Active Substance: PIMAVANSERIN TARTRATE
     Indication: Parkinson^s disease
     Dosage: 34 MILLIGRAM, QD
     Route: 048
     Dates: start: 20200423
  2. NUPLAZID [Suspect]
     Active Substance: PIMAVANSERIN TARTRATE
     Dosage: 34 MILLIGRAM, QD
     Route: 048
     Dates: start: 202009
  3. DROXIDOPA [Suspect]
     Active Substance: DROXIDOPA
  4. DROXIDOPA [Suspect]
     Active Substance: DROXIDOPA
     Dosage: 100 MILLIGRAM, TID, DECREASED DOSE

REACTIONS (3)
  - Pruritus [Unknown]
  - Supine hypertension [Unknown]
  - Nausea [Unknown]
